FAERS Safety Report 4725874-6 (Version None)
Quarter: 2005Q3

REPORT INFORMATION
  Report Type: 
  Country: None (occurrence: None)
  Receive Date: 20050725
  Receipt Date: 20050725
  Transmission Date: 20060218
  Serious: Yes (Other)
  Sender: FDA-Public Use
  Company Number: None

PATIENT
  Age: 18 Year
  Sex: Female
  Weight: 53.0709 kg

DRUGS (1)
  1. NICOTINE [Suspect]
     Dosage: 21MG QD TRANSDERMAL
     Route: 062

REACTIONS (1)
  - DRUG HYPERSENSITIVITY [None]
